FAERS Safety Report 12741914 (Version 1)
Quarter: 2016Q3

REPORT INFORMATION
  Report Type: Report from Study
  Country: US (occurrence: US)
  Receive Date: 20160914
  Receipt Date: 20160914
  Transmission Date: 20161109
  Serious: Yes (Other)
  Sender: FDA-Public Use
  Company Number: US-MYLANLABS-2016M1039005

PATIENT

DRUGS (5)
  1. POTASSIUM CHLORIDE. [Concomitant]
     Active Substance: POTASSIUM CHLORIDE
     Dosage: 20 MEQ/L WITH STERILE WATER AND POTASSIUM CHLORIDE; 150-200 CC/H OVER 4 H
     Route: 041
  2. FOLINIC ACID [Suspect]
     Active Substance: LEUCOVORIN
     Indication: CENTRAL NERVOUS SYSTEM LYMPHOMA
     Route: 048
  3. RITUXIMAB [Suspect]
     Active Substance: RITUXIMAB
     Indication: CENTRAL NERVOUS SYSTEM LYMPHOMA
     Dosage: WEEKLY 375 G/M2/DOSE
     Route: 065
  4. SODIUM BICARBONATE. [Concomitant]
     Active Substance: SODIUM BICARBONATE
     Dosage: 150MEQ/L WITH STERILE WATER AND SODIUM BICARBONATE; 150-200 CC/H OVER 4 H
     Route: 041
  5. METHOTREXATE. [Suspect]
     Active Substance: METHOTREXATE
     Indication: CENTRAL NERVOUS SYSTEM LYMPHOMA
     Dosage: BIWEEKLY HIGH DOSE 8 G/M2/DOSE
     Route: 041

REACTIONS (4)
  - Anaemia [Unknown]
  - Thrombocytopenia [Unknown]
  - Mucosal inflammation [Unknown]
  - Febrile neutropenia [Unknown]
